FAERS Safety Report 9267191 (Version 2)
Quarter: 2013Q3

REPORT INFORMATION
  Report Type: Spontaneous
  Country: CO (occurrence: CO)
  Receive Date: 20130502
  Receipt Date: 20130808
  Transmission Date: 20140515
  Serious: Yes (Other)
  Sender: FDA-Public Use
  Company Number: CO-VERTEX PHARMACEUTICALS INC-2013-005649

PATIENT
  Age: 64 Year
  Sex: Male
  Weight: 70 kg

DRUGS (7)
  1. INCIVO [Suspect]
     Indication: HEPATITIS C
     Dosage: 375 MG, TID, TABLET
     Route: 048
     Dates: start: 20130305, end: 20130529
  2. RIBAVIRIN [Suspect]
     Indication: HEPATITIS C
     Dosage: DOSAGE FORM: UNKNOWN
     Route: 048
     Dates: start: 20130305
  3. RIBAVIRIN [Suspect]
     Dosage: DOSAGE FORM: UNKNOWN
     Route: 048
  4. PEGASYS [Concomitant]
     Indication: HEPATITIS C
     Dosage: DOSAGE FORM: UNKNOWN
     Route: 058
     Dates: start: 20130305
  5. LOVASTATIN [Concomitant]
     Indication: HYPERTENSION
     Dosage: DOSAGE FORM: UNKNOWN
     Route: 065
  6. LEVOTHYROXINE [Concomitant]
     Indication: HYPOTHYROIDISM
     Dosage: DOSAGE FORM: UNKNOWN
     Route: 065
  7. TELMISARTAN/AMLODIPINE [Concomitant]
     Indication: HYPERTENSION
     Dosage: DOSAGE FORM: UNKNOWN
     Route: 065

REACTIONS (3)
  - Lower gastrointestinal haemorrhage [Not Recovered/Not Resolved]
  - Syncope [Recovered/Resolved]
  - Anaemia [Not Recovered/Not Resolved]
